FAERS Safety Report 5350613-8 (Version None)
Quarter: 2007Q2

REPORT INFORMATION
  Report Type: 
  Country: None (occurrence: None)
  Receive Date: 20070608
  Receipt Date: 20070605
  Transmission Date: 20071010
  Serious: Yes (Hospitalization)
  Sender: FDA-Public Use
  Company Number: CA-ASTRAZENECA-2007UW13548

PATIENT
  Sex: Female

DRUGS (2)
  1. CRESTOR [Suspect]
     Indication: HEPATIC STEATOSIS
     Route: 048
     Dates: start: 20070301, end: 20070501
  2. DETROL [Concomitant]

REACTIONS (2)
  - ABDOMINAL DISTENSION [None]
  - DRY MOUTH [None]
